FAERS Safety Report 10960262 (Version 1)
Quarter: 2015Q1

REPORT INFORMATION
  Report Type: Spontaneous
  Country: US (occurrence: None)
  Receive Date: 20150325
  Receipt Date: 20150325
  Transmission Date: 20150721
  Serious: Yes (Hospitalization)
  Sender: FDA-Public Use
  Company Number: 15-03-010

PATIENT
  Age: 67 Year
  Sex: Female
  Weight: 57.61 kg

DRUGS (2)
  1. COLISTMETHATE [Suspect]
     Active Substance: COLISTIMETHATE SODIUM
     Indication: BRONCHIECTASIS
     Dosage: THERAPY DATES:  2-3 YEARS, 150 MG, SINGLE INJECTION?
  2. OXYGEN. [Concomitant]
     Active Substance: OXYGEN

REACTIONS (1)
  - Pyrexia [None]

NARRATIVE: CASE EVENT DATE: 20150218
